FAERS Safety Report 21636046 (Version 2)
Quarter: 2022Q4

REPORT INFORMATION
  Report Type: Spontaneous
  Country: CN (occurrence: None)
  Receive Date: 20221123
  Receipt Date: 20221205
  Transmission Date: 20230112
  Serious: Yes (Other)
  Sender: FDA-Public Use
  Company Number: CN-ROCHE-3222367

PATIENT
  Age: 62 Year
  Sex: Female

DRUGS (4)
  1. HERCEPTIN [Suspect]
     Active Substance: TRASTUZUMAB
     Indication: Breast cancer
     Dosage: TCBHP REGIMEN
     Route: 065
  2. PERJETA [Suspect]
     Active Substance: PERTUZUMAB
     Indication: Breast cancer
     Dosage: TCBHP REGIMEN
     Route: 065
  3. CARBOPLATIN [Concomitant]
     Active Substance: CARBOPLATIN
     Indication: Breast cancer
     Dosage: TCBHP REGIMEN, DAY 1
  4. PACLITAXEL [Concomitant]
     Active Substance: PACLITAXEL
     Indication: Breast cancer
     Dosage: TCBHP REGIMEN, DAY 1

REACTIONS (4)
  - Myelosuppression [Unknown]
  - Gastrointestinal disorder [Unknown]
  - Hepatic function abnormal [Unknown]
  - Peripheral nerve injury [Unknown]
